FAERS Safety Report 5648017-3 (Version None)
Quarter: 2008Q1

REPORT INFORMATION
  Report Type: 
  Country: None (occurrence: None)
  Receive Date: 20080229
  Receipt Date: 20080229
  Transmission Date: 20080703
  Serious: Yes (Death)
  Sender: FDA-Public Use
  Company Number: None

PATIENT
  Sex: Female
  Weight: 111 kg

DRUGS (8)
  1. CARBOPLATIN [Suspect]
     Dosage: 708 MG
     Dates: end: 20080215
  2. TAXOL [Suspect]
     Dosage: 350 MG
     Dates: end: 20080215
  3. COMPAZINE [Concomitant]
  4. MACROBID [Concomitant]
  5. PERCOCET [Concomitant]
  6. ZOFRAN [Concomitant]
  7. LIPITOR [Concomitant]
  8. VITAMINS [Concomitant]

REACTIONS (10)
  - BLOOD GLUCOSE INCREASED [None]
  - BLOOD POTASSIUM INCREASED [None]
  - CARDIO-RESPIRATORY ARREST [None]
  - DIARRHOEA [None]
  - HAEMOGLOBIN DECREASED [None]
  - NAUSEA [None]
  - TROPONIN INCREASED [None]
  - UNRESPONSIVE TO STIMULI [None]
  - VOMITING [None]
  - WHITE BLOOD CELL COUNT DECREASED [None]
